FAERS Safety Report 5096951-8 (Version None)
Quarter: 2006Q3

REPORT INFORMATION
  Report Type: 
  Country: None (occurrence: None)
  Receive Date: 20060831
  Receipt Date: 20060823
  Transmission Date: 20061208
  Serious: Yes (Hospitalization, Other)
  Sender: FDA-Public Use
  Company Number: 2006AL002464

PATIENT
  Age: 54 Year
  Sex: Female

DRUGS (3)
  1. PERMETHRIN [Suspect]
     Indication: ACARODERMATITIS
     Dosage: X1; TOP
     Route: 061
     Dates: start: 20060814, end: 20060817
  2. TOPROL-XL [Concomitant]
  3. LEVOTHYROXINE SODIUM [Concomitant]

REACTIONS (6)
  - ABASIA [None]
  - CHEST DISCOMFORT [None]
  - DIZZINESS [None]
  - HEADACHE [None]
  - LUMBAR PUNCTURE ABNORMAL [None]
  - NONSPECIFIC REACTION [None]
